FAERS Safety Report 23873928 (Version 1)
Quarter: 2024Q2

REPORT INFORMATION
  Report Type: Spontaneous
  Country: US (occurrence: None)
  Receive Date: 20240517
  Receipt Date: 20240517
  Transmission Date: 20240716
  Serious: Yes (Other)
  Sender: FDA-Public Use
  Company Number: None

PATIENT
  Age: 58 Year
  Sex: Male
  Weight: 92.7 kg

DRUGS (1)
  1. OZEMPIC [Suspect]
     Active Substance: SEMAGLUTIDE
     Indication: Diabetes mellitus
     Dates: start: 20200305, end: 20240201

REACTIONS (3)
  - Gastrointestinal stoma complication [None]
  - Haemorrhage [None]
  - Therapy cessation [None]

NARRATIVE: CASE EVENT DATE: 20200501
